FAERS Safety Report 21503839 (Version 1)
Quarter: 2022Q4

REPORT INFORMATION
  Report Type: Spontaneous
  Country: US (occurrence: None)
  Receive Date: 20221025
  Receipt Date: 20221025
  Transmission Date: 20230113
  Serious: Yes (Death, Hospitalization)
  Sender: FDA-Public Use
  Company Number: None

PATIENT
  Age: 68 Year
  Sex: Male
  Weight: 83.4 kg

DRUGS (2)
  1. CARBOPLATIN [Suspect]
     Active Substance: CARBOPLATIN
     Dates: end: 20220718
  2. TAXOL [Suspect]
     Active Substance: PACLITAXEL
     Dates: end: 20220718

REACTIONS (1)
  - Completed suicide [None]

NARRATIVE: CASE EVENT DATE: 20221002
